FAERS Safety Report 6414549-3 (Version None)
Quarter: 2009Q4

REPORT INFORMATION
  Report Type: 
  Country: None (occurrence: None)
  Receive Date: 20091026
  Receipt Date: 20091021
  Transmission Date: 20100525
  Serious: Yes (Death, Other)
  Sender: FDA-Public Use
  Company Number: PHHY2009FR45963

PATIENT
  Age: 16 Year

DRUGS (5)
  1. CYCLOSPORINE [Suspect]
     Indication: RENAL TRANSPLANT
     Route: 048
  2. BASILIXIMAB [Suspect]
     Indication: RENAL TRANSPLANT
  3. PREDNISOLONE [Suspect]
     Indication: RENAL TRANSPLANT
     Dosage: 60 MG/M2, UNK
  4. MYCOPHENOLATE MOFETIL [Suspect]
     Indication: RENAL TRANSPLANT
     Dosage: 500 MG/M2, UNK
  5. MYCOPHENOLATE MOFETIL [Suspect]
     Dosage: 600 MG/M2, UNK

REACTIONS (7)
  - B-CELL LYMPHOMA STAGE III [None]
  - BACK PAIN [None]
  - BONE NEOPLASM [None]
  - ENCEPHALITIS VIRAL [None]
  - ENCEPHALOPATHY [None]
  - EPSTEIN-BARR VIRUS INFECTION [None]
  - RESPIRATORY FAILURE [None]
